FAERS Safety Report 19244291 (Version 3)
Quarter: 2021Q3

REPORT INFORMATION
  Report Type: Spontaneous
  Country: FR (occurrence: FR)
  Receive Date: 20210512
  Receipt Date: 20210705
  Transmission Date: 20211014
  Serious: Yes (Life-Threatening, Hospitalization, Other)
  Sender: FDA-Public Use
  Company Number: FR-ACCORD-224769

PATIENT
  Age: 56 Year
  Sex: Male

DRUGS (6)
  1. CABERGOLINE. [Concomitant]
     Active Substance: CABERGOLINE
     Indication: HYPERPROLACTINAEMIA
  2. CINACALCET/CINACALCET HYDROCHLORIDE [Concomitant]
     Active Substance: CINACALCET\CINACALCET HYDROCHLORIDE
     Indication: HYPERPARATHYROIDISM PRIMARY
  3. ESOMEPRAZOLE/ESOMEPRAZOLE MAGNESIUM/ESOMEPRAZOLE SODIUM [Suspect]
     Active Substance: ESOMEPRAZOLE
     Indication: GASTRINOMA
     Dates: start: 2017, end: 201806
  4. CINACALCET/CINACALCET HYDROCHLORIDE [Concomitant]
     Active Substance: CINACALCET\CINACALCET HYDROCHLORIDE
     Indication: HYPERCALCAEMIA
  5. ESOMEPRAZOLE/ESOMEPRAZOLE MAGNESIUM/ESOMEPRAZOLE SODIUM [Suspect]
     Active Substance: ESOMEPRAZOLE
     Indication: GASTRINOMA
     Dates: start: 201508, end: 2017
  6. ESOMEPRAZOLE/ESOMEPRAZOLE MAGNESIUM/ESOMEPRAZOLE SODIUM [Suspect]
     Active Substance: ESOMEPRAZOLE
     Indication: GASTRINOMA
     Dates: start: 201808, end: 201808

REACTIONS (10)
  - Gait disturbance [Recovering/Resolving]
  - Renal impairment [Unknown]
  - Metabolic alkalosis [Unknown]
  - Cerebellar syndrome [Recovering/Resolving]
  - Hypokalaemia [Unknown]
  - Dysarthria [Unknown]
  - Nystagmus [Unknown]
  - Seizure [Unknown]
  - Hypomagnesaemia [Recovered/Resolved]
  - Pancreatic mass [Unknown]

NARRATIVE: CASE EVENT DATE: 201707
